FAERS Safety Report 5376490-7 (Version None)
Quarter: 2007Q3

REPORT INFORMATION
  Report Type: 
  Country: None (occurrence: None)
  Receive Date: 20070702
  Receipt Date: 20070622
  Transmission Date: 20080115
  Serious: Yes (Life-Threatening)
  Sender: FDA-Public Use
  Company Number: FR-ABBOTT-07P-056-0371163-00

PATIENT
  Sex: Female

DRUGS (4)
  1. MONONAXY [Suspect]
     Indication: BRONCHITIS
     Route: 048
     Dates: start: 20070421, end: 20070423
  2. MONONAXY [Suspect]
  3. PREDNISOLONE SODIUM SULFOBENZOATE [Concomitant]
     Indication: DRUG USE FOR UNKNOWN INDICATION
  4. EBASTINE [Concomitant]
     Indication: DRUG USE FOR UNKNOWN INDICATION

REACTIONS (3)
  - ERYTHEMA [None]
  - OEDEMA [None]
  - PRURITUS [None]
